FAERS Safety Report 12332678 (Version 2)
Quarter: 2016Q4

REPORT INFORMATION
  Report Type: Spontaneous
  Country: US (occurrence: US)
  Receive Date: 20160504
  Receipt Date: 20161013
  Transmission Date: 20170207
  Serious: No
  Sender: FDA-Public Use
  Company Number: US-ROCHE-1713596

PATIENT
  Age: 69 Year
  Sex: Male

DRUGS (7)
  1. LEVOTHYROXINE SODIUM. [Concomitant]
     Active Substance: LEVOTHYROXINE SODIUM
  2. XIFAXAN [Concomitant]
     Active Substance: RIFAXIMIN
  3. PANTOPRAZOLE SODIUM. [Concomitant]
     Active Substance: PANTOPRAZOLE SODIUM
  4. ESBRIET [Suspect]
     Active Substance: PIRFENIDONE
     Indication: IDIOPATHIC PULMONARY FIBROSIS
     Route: 048
     Dates: start: 20160212
  5. LACTULOSE. [Concomitant]
     Active Substance: LACTULOSE
  6. PREDNISONE. [Concomitant]
     Active Substance: PREDNISONE
  7. PRAVASTATIN SODIUM. [Concomitant]
     Active Substance: PRAVASTATIN SODIUM

REACTIONS (5)
  - Decreased appetite [Unknown]
  - Nausea [Unknown]
  - Weight decreased [Unknown]
  - Pain [Unknown]
  - Fatigue [Unknown]

NARRATIVE: CASE EVENT DATE: 20160214
